FAERS Safety Report 14387878 (Version 2)
Quarter: 2018Q2

REPORT INFORMATION
  Report Type: Spontaneous
  Country: US (occurrence: US)
  Receive Date: 20180115
  Receipt Date: 20180625
  Transmission Date: 20180711
  Serious: Yes (Other)
  Sender: FDA-Public Use
  Company Number: US-SA-2017SA198351

PATIENT
  Age: 54 Year
  Sex: Female
  Weight: 80 kg

DRUGS (7)
  1. TAXOTERE [Suspect]
     Active Substance: DOCETAXEL
     Indication: BREAST CANCER FEMALE
     Dosage: UNK UNK,QCY
     Route: 042
     Dates: start: 20050317, end: 20050317
  2. TAXOTERE [Suspect]
     Active Substance: DOCETAXEL
     Dosage: 67 MG, QW
     Route: 042
     Dates: start: 20050922, end: 20050922
  3. NEOSAR [Concomitant]
     Active Substance: CYCLOPHOSPHAMIDE
  4. ELLENCE [Concomitant]
     Active Substance: EPIRUBICIN HYDROCHLORIDE
  5. TAXOL [Concomitant]
     Active Substance: PACLITAXEL
  6. PARAPLATIN [Concomitant]
     Active Substance: CARBOPLATIN
  7. DOXORUBICIN [Concomitant]
     Active Substance: DOXORUBICIN

REACTIONS (3)
  - Alopecia [Recovering/Resolving]
  - Anxiety [Unknown]
  - Emotional distress [Unknown]
